FAERS Safety Report 13940145 (Version 3)
Quarter: 2017Q4

REPORT INFORMATION
  Report Type: Spontaneous
  Country: JP (occurrence: JP)
  Receive Date: 20170906
  Receipt Date: 20171003
  Transmission Date: 20180320
  Serious: Yes (Death, Other)
  Sender: FDA-Public Use
  Company Number: JP-SUN PHARMACEUTICAL INDUSTRIES LTD-2017RR-148959

PATIENT
  Age: 50 Year
  Sex: Male

DRUGS (2)
  1. GEMCITABINE [Suspect]
     Active Substance: GEMCITABINE\GEMCITABINE HYDROCHLORIDE
     Dosage: 53 %, ONCE
     Route: 065
  2. GEMCITABINE [Suspect]
     Active Substance: GEMCITABINE\GEMCITABINE HYDROCHLORIDE
     Indication: PANCREATIC CARCINOMA METASTATIC
     Dosage: 80 %, BIWEEKLY
     Route: 065
     Dates: end: 201411

REACTIONS (7)
  - Intestinal haemorrhage [Unknown]
  - Disease progression [Unknown]
  - Cholangitis [Unknown]
  - Cerebral infarction [Unknown]
  - Bacteraemia [Unknown]
  - Drug effect incomplete [Unknown]
  - Leukopenia [Unknown]

NARRATIVE: CASE EVENT DATE: 201411
